FAERS Safety Report 6779419-X (Version None)
Quarter: 2010Q2

REPORT INFORMATION
  Report Type: 
  Country: None (occurrence: None)
  Receive Date: 20100618
  Receipt Date: 20100608
  Transmission Date: 20101027
  Serious: Yes (Other)
  Sender: FDA-Public Use
  Company Number: FR-JNJFOC-20100404715

PATIENT
  Age: 52 Year
  Sex: Female

DRUGS (5)
  1. REMICADE [Suspect]
     Indication: RHEUMATOID ARTHRITIS
     Route: 042
  2. REMICADE [Suspect]
     Route: 042
  3. REMICADE [Suspect]
     Route: 042
  4. REMICADE [Suspect]
     Route: 042
  5. METHOTREXATE [Concomitant]
     Indication: RHEUMATOID ARTHRITIS

REACTIONS (9)
  - BRONCHOSPASM [None]
  - CHEST PAIN [None]
  - DYSPNOEA [None]
  - ERYTHEMA [None]
  - HEADACHE [None]
  - INFUSION RELATED REACTION [None]
  - MALAISE [None]
  - PAIN [None]
  - UPPER RESPIRATORY TRACT INFECTION [None]
